FAERS Safety Report 8218613-8 (Version None)
Quarter: 2012Q1

REPORT INFORMATION
  Report Type: 
  Country: None (occurrence: None)
  Receive Date: 20120306
  Receipt Date: 20110817
  Transmission Date: 20120608
  Serious: Yes (Life-Threatening, Hospitalization)
  Sender: FDA-Public Use
  Company Number: US-006011

PATIENT
  Age: 65 Year
  Sex: Male
  Weight: 97.2 kg

DRUGS (9)
  1. METOPROLOL TARTRATE [Concomitant]
  2. PRAZOSIN GITS [Concomitant]
  3. VERDENAFIL (VERDENAFIL) [Concomitant]
  4. SIMVASTATIN [Concomitant]
  5. METFORMIN HCL [Concomitant]
  6. CITALOPRAM HYDROBROMIDE [Concomitant]
  7. ISOVUE-370 [Suspect]
     Indication: COMPUTERISED TOMOGRAM
     Dosage: 140ML ONCE  INTRAVENOUS (NOT OTHERWISE SPECIFIED)
     Route: 042
     Dates: start: 20110309, end: 20110309
  8. NIACIN [Concomitant]
  9. LISINOPRIL [Concomitant]

REACTIONS (2)
  - CONTRAST MEDIA REACTION [None]
  - HYPERSENSITIVITY [None]
